FAERS Safety Report 9519746 (Version 1)
Quarter: 2013Q3

REPORT INFORMATION
  Report Type: Spontaneous
  Country: US (occurrence: US)
  Receive Date: 20130912
  Receipt Date: 20130912
  Transmission Date: 20140515
  Serious: Yes (Other)
  Sender: FDA-Public Use
  Company Number: US-ASTRAZENECA-2013SE67708

PATIENT
  Age: 57 Year
  Sex: Male

DRUGS (3)
  1. BRILINTA [Suspect]
     Indication: ACUTE CORONARY SYNDROME
     Route: 048
     Dates: start: 20130829, end: 2013
  2. ASPIRIN [Concomitant]
     Dates: start: 20130829
  3. ANGIOMAX [Concomitant]

REACTIONS (1)
  - Thrombosis in device [Unknown]
